FAERS Safety Report 11301670 (Version 1)
Quarter: 2015Q3

REPORT INFORMATION
  Report Type: Spontaneous
  Country: US (occurrence: US)
  Receive Date: 20150722
  Receipt Date: 20150722
  Transmission Date: 20151125
  Serious: No
  Sender: FDA-Public Use
  Company Number: US-ELI_LILLY_AND_COMPANY-US201102007376

PATIENT
  Sex: Male

DRUGS (2)
  1. HUMATROPE [Suspect]
     Active Substance: SOMATROPIN
     Dosage: 4 MG, DAILY (1/D)
  2. HUMATROPE [Suspect]
     Active Substance: SOMATROPIN
     Dosage: 2.5 MG, DAILY (1/D)

REACTIONS (2)
  - Injection site pain [Unknown]
  - Injection site induration [Unknown]
